FAERS Safety Report 25994056 (Version 1)
Quarter: 2025Q4

REPORT INFORMATION
  Report Type: Spontaneous
  Country: US (occurrence: US)
  Receive Date: 20251104
  Receipt Date: 20251104
  Transmission Date: 20260117
  Serious: No
  Sender: LEO PHARM
  Company Number: US-LEO Pharma-383892

PATIENT
  Age: 53 Year
  Sex: Female

DRUGS (3)
  1. ADBRY [Suspect]
     Active Substance: TRALOKINUMAB-LDRM
     Indication: Eczema
     Dosage: TREATMENT ONGOING??INJECT 2 (300MG) PENS UNDER THE SKIN ON DAY 1 (10/21/2025), THEN 1 (300MG) PEN EV
     Route: 058
     Dates: start: 20251021
  2. ADBRY [Suspect]
     Active Substance: TRALOKINUMAB-LDRM
     Indication: Eczema
     Dosage: TREATMENT ONGOING??INJECT 2 (300MG) PENS UNDER THE SKIN ON DAY 1 (10/21/2025), THEN 1 (300MG) PEN EV
     Route: 058
     Dates: start: 20251021
  3. EMGALITY [Concomitant]
     Active Substance: GALCANEZUMAB-GNLM
     Indication: Product used for unknown indication

REACTIONS (2)
  - Initial insomnia [Recovered/Resolved]
  - Pruritus [Recovered/Resolved]

NARRATIVE: CASE EVENT DATE: 20251022
